FAERS Safety Report 5674941-1 (Version None)
Quarter: 2008Q1

REPORT INFORMATION
  Report Type: 
  Country: None (occurrence: None)
  Receive Date: 20080320
  Receipt Date: 20080308
  Transmission Date: 20080703
  Serious: Yes (Other)
  Sender: FDA-Public Use
  Company Number: US-PFIZER INC-2008009184

PATIENT
  Sex: Female
  Weight: 68 kg

DRUGS (9)
  1. CHANTIX [Suspect]
     Indication: TOBACCO ABUSE
     Dates: start: 20080124, end: 20080126
  2. NORCO [Interacting]
     Indication: PAIN
     Dosage: FREQ:QID: EVERY DAY
  3. NORCO [Interacting]
     Indication: MYOFASCIAL PAIN SYNDROME
  4. CALCIUM [Concomitant]
  5. AMBIEN [Concomitant]
     Dosage: DAILY DOSE:12.5MG-TEXT:NIGHTLY
  6. VITAMIN B-12 [Concomitant]
  7. WELLBUTRIN [Concomitant]
     Dosage: DAILY DOSE:300-FREQ:DAILY
  8. ZOLOFT [Concomitant]
     Dosage: DAILY DOSE:50MG-FREQ:DAILY
  9. SKELAXIN [Concomitant]
     Dosage: DAILY DOSE:800MG-FREQ:TID

REACTIONS (3)
  - DRUG INEFFECTIVE [None]
  - DRUG INTERACTION [None]
  - PAIN [None]
